FAERS Safety Report 22717140 (Version 4)
Quarter: 2023Q4

REPORT INFORMATION
  Report Type: Spontaneous
  Country: US (occurrence: US)
  Receive Date: 20230718
  Receipt Date: 20231108
  Transmission Date: 20240109
  Serious: Yes (Death, Hospitalization)
  Sender: FDA-Public Use
  Company Number: US-PFIZER INC-202300250879

PATIENT
  Age: 83 Year
  Sex: Male
  Weight: 81.65 kg

DRUGS (2)
  1. VYNDAMAX [Suspect]
     Active Substance: TAFAMIDIS
     Indication: Lung disorder
     Dosage: 61MG WITH A DRINK WATER EVERY DAY IN THE EVENING
     Dates: end: 20231013
  2. VYNDAMAX [Suspect]
     Active Substance: TAFAMIDIS
     Indication: Dyspnoea

REACTIONS (5)
  - Cardiac failure [Fatal]
  - Heart rate irregular [Unknown]
  - Memory impairment [Recovered/Resolved]
  - Posture abnormal [Unknown]
  - Off label use [Unknown]

NARRATIVE: CASE EVENT DATE: 20231014
